FAERS Safety Report 21484681 (Version 1)
Quarter: 2022Q4

REPORT INFORMATION
  Report Type: Report from Study
  Country: US (occurrence: US)
  Receive Date: 20221020
  Receipt Date: 20221020
  Transmission Date: 20230112
  Serious: Yes (Hospitalization)
  Sender: FDA-Public Use
  Company Number: US-EXELIXIS-XL18422056972

PATIENT

DRUGS (4)
  1. PLACEBO [Suspect]
     Active Substance: UNSPECIFIED INGREDIENT
     Indication: Malignant neoplasm of islets of Langerhans
     Dosage: 60 MG, QD
     Route: 048
     Dates: start: 20220405
  2. CABOZANTINIB [Suspect]
     Active Substance: CABOZANTINIB
     Indication: Malignant neoplasm of islets of Langerhans
     Dosage: 60 MG, QD
     Route: 048
     Dates: start: 20220405
  3. PLACEBO [Suspect]
     Active Substance: UNSPECIFIED INGREDIENT
     Dosage: 40 MG
     Route: 048
     Dates: end: 20220722
  4. CABOZANTINIB [Suspect]
     Active Substance: CABOZANTINIB
     Dosage: 40 MG
     Route: 048
     Dates: end: 20220722

REACTIONS (2)
  - Cardiac arrest [Recovered/Resolved]
  - Myocardial infarction [Recovered/Resolved]

NARRATIVE: CASE EVENT DATE: 20220721
